FAERS Safety Report 25109735 (Version 1)
Quarter: 2025Q1

REPORT INFORMATION
  Report Type: Report from Study
  Country: MX (occurrence: MX)
  Receive Date: 20250323
  Receipt Date: 20250323
  Transmission Date: 20250409
  Serious: Yes (Hospitalization)
  Sender: ABBVIE
  Company Number: MX-ABBVIE-6191029

PATIENT
  Age: 47 Year
  Sex: Male
  Weight: 90 kg

DRUGS (2)
  1. VENCLEXTA [Suspect]
     Active Substance: VENETOCLAX
     Indication: Chronic lymphocytic leukaemia
     Dosage: 400 MILLIGRAM?4 PILLS DAILY
     Route: 048
     Dates: start: 20241104, end: 20250210
  2. METFORMIN HYDROCHLORIDE [Concomitant]
     Active Substance: METFORMIN HYDROCHLORIDE
     Indication: Chronic lymphocytic leukaemia

REACTIONS (5)
  - Pain [Recovered/Resolved]
  - Headache [Recovered/Resolved]
  - Anal incontinence [Recovered/Resolved]
  - Vomiting [Recovered/Resolved]
  - Dizziness [Recovered/Resolved]

NARRATIVE: CASE EVENT DATE: 20250301
